FAERS Safety Report 20436478 (Version 2)
Quarter: 2022Q2

REPORT INFORMATION
  Report Type: Spontaneous
  Country: JM (occurrence: JM)
  Receive Date: 20220207
  Receipt Date: 20220527
  Transmission Date: 20220721
  Serious: Yes (Death)
  Sender: FDA-Public Use
  Company Number: JM-NOVARTISPH-NVSC2022JM026007

PATIENT
  Age: 48 Year
  Sex: Male
  Weight: 92 kg

DRUGS (3)
  1. GLIVEC [Suspect]
     Active Substance: IMATINIB MESYLATE
     Indication: Chronic myeloid leukaemia
     Dosage: 400 MG, QD
     Route: 048
     Dates: start: 20181221
  2. LASIX [Concomitant]
     Active Substance: FUROSEMIDE
     Indication: Product used for unknown indication
     Dosage: 40 MG, BID (FLUID RESTRICTION OF 1.5L/24 HOURS)
     Route: 065
     Dates: start: 20210916
  3. CARVEDILOL [Concomitant]
     Active Substance: CARVEDILOL
     Indication: Product used for unknown indication
     Dosage: 3.125 MG, QD
     Route: 065
     Dates: start: 20210916

REACTIONS (1)
  - Death [Fatal]

NARRATIVE: CASE EVENT DATE: 20211101
